FAERS Safety Report 24966832 (Version 1)
Quarter: 2025Q1

REPORT INFORMATION
  Report Type: Report from Study
  Country: CH (occurrence: CH)
  Receive Date: 20250213
  Receipt Date: 20250213
  Transmission Date: 20250408
  Serious: Yes (Hospitalization, Other)
  Sender: PFIZER
  Company Number: None

PATIENT
  Age: 25 Year
  Sex: Male

DRUGS (2)
  1. LORAZEPAM [Suspect]
     Active Substance: LORAZEPAM
     Dates: start: 202310
  2. ALCOHOL [Concomitant]
     Active Substance: ALCOHOL

REACTIONS (7)
  - Intentional overdose [Unknown]
  - Contraindicated product administered [Unknown]
  - Disturbance in attention [Unknown]
  - Suicide attempt [Unknown]
  - Poisoning [Unknown]
  - Vomiting [Unknown]
  - Aspiration [Unknown]
